FAERS Safety Report 24950189 (Version 1)
Quarter: 2025Q1

REPORT INFORMATION
  Report Type: Spontaneous
  Country: FR (occurrence: FR)
  Receive Date: 20250210
  Receipt Date: 20250210
  Transmission Date: 20250409
  Serious: Yes (Life-Threatening)
  Sender: FRESENIUS KABI
  Company Number: None

PATIENT
  Age: 63 Year
  Sex: Male

DRUGS (10)
  1. PIPERACILLIN AND TAZOBACTAM [Suspect]
     Active Substance: PIPERACILLIN SODIUM\TAZOBACTAM SODIUM
     Indication: Product used for unknown indication
     Route: 042
     Dates: start: 20241226, end: 20241226
  2. ETOMIDATE [Concomitant]
     Active Substance: ETOMIDATE
     Indication: Product used for unknown indication
  3. NICOTINAMIDE [Concomitant]
     Active Substance: NIACINAMIDE
     Indication: Product used for unknown indication
  4. PROPOFOL [Concomitant]
     Active Substance: PROPOFOL
     Indication: Product used for unknown indication
  5. ANIDULAFUNGIN [Concomitant]
     Active Substance: ANIDULAFUNGIN
     Indication: Product used for unknown indication
  6. PERINDOPRIL [Concomitant]
     Active Substance: PERINDOPRIL
     Indication: Product used for unknown indication
  7. ATORVASTATIN [Concomitant]
     Active Substance: ATORVASTATIN
     Indication: Product used for unknown indication
  8. ATENOLOL [Concomitant]
     Active Substance: ATENOLOL
     Indication: Product used for unknown indication
  9. ASPIRIN [Concomitant]
     Active Substance: ASPIRIN
     Indication: Product used for unknown indication
  10. OXAZEPAM [Concomitant]
     Active Substance: OXAZEPAM
     Indication: Product used for unknown indication

REACTIONS (2)
  - Renal failure [Recovered/Resolved]
  - Incorrect dose administered [Recovered/Resolved]

NARRATIVE: CASE EVENT DATE: 20241227
